FAERS Safety Report 12440229 (Version 1)
Quarter: 2016Q2

REPORT INFORMATION
  Report Type: Spontaneous
  Country: US (occurrence: US)
  Receive Date: 20160606
  Receipt Date: 20160606
  Transmission Date: 20160815
  Serious: No
  Sender: FDA-Public Use
  Company Number: US-AMGEN-USASP2015096214

PATIENT
  Sex: Male

DRUGS (2)
  1. PROCRIT [Suspect]
     Active Substance: ERYTHROPOIETIN
     Indication: END STAGE RENAL DISEASE
     Dosage: UNK UNK, 3 TIMES A WEEK
     Route: 065
  2. PROCRIT [Suspect]
     Active Substance: ERYTHROPOIETIN
     Indication: HAEMOLYTIC ANAEMIA

REACTIONS (4)
  - Incorrect product storage [Unknown]
  - Cardiac disorder [Unknown]
  - Haemoglobin abnormal [Unknown]
  - Drug effect delayed [Unknown]
